FAERS Safety Report 5940875-8 (Version None)
Quarter: 2008Q4

REPORT INFORMATION
  Report Type: 
  Country: None (occurrence: None)
  Receive Date: 20081104
  Receipt Date: 20081028
  Transmission Date: 20090506
  Serious: Yes (Other)
  Sender: FDA-Public Use
  Company Number: US-JNJCH-2008052227

PATIENT
  Age: 58 Year
  Sex: Female

DRUGS (2)
  1. LISTERINE WHITENING QUICK DISSOLVING STRIPS [Suspect]
     Indication: DENTAL CARE
     Dosage: TEXT:TWICE A DAY
     Route: 048
     Dates: start: 20081012, end: 20081014
  2. ENALAPRIL MALEATE [Concomitant]
     Indication: BLOOD PRESSURE
     Dosage: TEXT:10 MG 2 TIMES  A DAY
     Route: 065

REACTIONS (2)
  - APPLICATION SITE BURN [None]
  - GINGIVAL DISORDER [None]
